FAERS Safety Report 8967674 (Version 1)
Quarter: 2012Q4

REPORT INFORMATION
  Report Type: Spontaneous
  Country: US (occurrence: None)
  Receive Date: 20121206
  Receipt Date: 20121206
  Transmission Date: 20130627
  Serious: Yes (Hospitalization)
  Sender: FDA-Public Use
  Company Number: 110321-000127

PATIENT
  Sex: Female

DRUGS (6)
  1. MB* SKIN BRIGHT, DECOLLETE AND NECK TREAT. SPF 15 [Suspect]
     Dosage: Twice daily dermal
     Dates: start: 20110311
  2. MEANINGFUL BEAUTY MAINTENANCE 1 PF 20 [Suspect]
     Dosage: Twice daily dermal
  3. LISINOPRIL [Concomitant]
  4. MULTIVITAMINS [Concomitant]
  5. B12 [Concomitant]
  6. CALCIUM [Concomitant]

REACTIONS (1)
  - Swelling face [None]
